FAERS Safety Report 14426896 (Version 1)
Quarter: 2018Q1

REPORT INFORMATION
  Report Type: Report from Study
  Country: ES (occurrence: ES)
  Receive Date: 20180123
  Receipt Date: 20180123
  Transmission Date: 20180509
  Serious: Yes (Hospitalization)
  Sender: FDA-Public Use
  Company Number: ES-PFIZER INC-2018027319

PATIENT
  Age: 57 Year
  Sex: Male

DRUGS (2)
  1. PIROXICAM. [Suspect]
     Active Substance: PIROXICAM
     Indication: ARTHRALGIA
     Dosage: 600 MG, 1X/DAY
     Route: 048
     Dates: start: 201603, end: 20160403
  2. IBUPROFEN. [Interacting]
     Active Substance: IBUPROFEN
     Indication: ARTHRALGIA
     Dosage: 1.2 G, 1X/DAY
     Route: 048
     Dates: start: 201603, end: 20160403

REACTIONS (2)
  - Upper gastrointestinal haemorrhage [Recovered/Resolved]
  - Drug interaction [Recovered/Resolved]

NARRATIVE: CASE EVENT DATE: 20160331
